FAERS Safety Report 23701188 (Version 2)
Quarter: 2024Q2

REPORT INFORMATION
  Report Type: Spontaneous
  Country: GB (occurrence: None)
  Receive Date: 20240403
  Receipt Date: 20240522
  Transmission Date: 20240715
  Serious: Yes (Hospitalization)
  Sender: FDA-Public Use
  Company Number: 2024A076941

PATIENT
  Sex: Female

DRUGS (1)
  1. TEZSPIRE [Suspect]
     Active Substance: TEZEPELUMAB-EKKO

REACTIONS (7)
  - Peripheral swelling [Unknown]
  - Asthma [Unknown]
  - Cough [Unknown]
  - Vomiting [Unknown]
  - Eye swelling [Unknown]
  - Vision blurred [Unknown]
  - Pain [Unknown]
